FAERS Safety Report 20852939 (Version 3)
Quarter: 2022Q2

REPORT INFORMATION
  Report Type: Spontaneous
  Country: FR (occurrence: FR)
  Receive Date: 20220520
  Receipt Date: 20220527
  Transmission Date: 20220721
  Serious: Yes (Death)
  Sender: FDA-Public Use
  Company Number: FR-SHIONOGI, INC-2022000436

PATIENT
  Age: 71 Year
  Sex: Male

DRUGS (3)
  1. FETROJA [Suspect]
     Active Substance: CEFIDEROCOL SULFATE TOSYLATE
     Indication: Stenotrophomonas infection
     Dosage: 2 G, TID
     Route: 042
     Dates: start: 20220207, end: 20220220
  2. FETROJA [Suspect]
     Active Substance: CEFIDEROCOL SULFATE TOSYLATE
     Indication: Pathogen resistance
     Dosage: UNK
     Route: 042
     Dates: start: 20220410, end: 20220410
  3. FETROJA [Suspect]
     Active Substance: CEFIDEROCOL SULFATE TOSYLATE
     Indication: Respiratory distress

REACTIONS (3)
  - Lung adenocarcinoma [Fatal]
  - Respiratory distress [Fatal]
  - Disease progression [Fatal]

NARRATIVE: CASE EVENT DATE: 20220401
